FAERS Safety Report 8984526 (Version 1)
Quarter: 2012Q4

REPORT INFORMATION
  Report Type: Spontaneous
  Country: IN (occurrence: None)
  Receive Date: 20121217
  Receipt Date: 20121217
  Transmission Date: 20130627
  Serious: Yes (Other)
  Sender: FDA-Public Use
  Company Number: AUR-APL-2012-05304

PATIENT
  Age: 63 Year
  Sex: Female

DRUGS (4)
  1. RISPERIDONE (RISPERIDONE) [Suspect]
     Indication: MAJOR DEPRESSIVE DISORDER NOS
  2. PAROXETINE (PAROXETINE) [Concomitant]
  3. THIAMINE (THIAMINE) [Concomitant]
  4. FOLIC ACID (FOLIC ACID) [Concomitant]

REACTIONS (1)
  - Rabbit syndrome [None]
